FAERS Safety Report 13951154 (Version 1)
Quarter: 2017Q3

REPORT INFORMATION
  Report Type: Spontaneous
  Country: US (occurrence: US)
  Receive Date: 20170908
  Receipt Date: 20170908
  Transmission Date: 20171128
  Serious: No
  Sender: FDA-Public Use
  Company Number: US-JAZZ-2014-US-010094

PATIENT
  Sex: Male

DRUGS (5)
  1. XYREM [Suspect]
     Active Substance: SODIUM OXYBATE
     Indication: NARCOLEPSY
     Dosage: 2 G, SECOND DOSE
     Route: 048
     Dates: start: 200412, end: 200502
  2. XYREM [Suspect]
     Active Substance: SODIUM OXYBATE
     Indication: CATAPLEXY
     Dosage: 4 G,FIRST DOSE
     Route: 048
     Dates: start: 200412, end: 200502
  3. XYREM [Suspect]
     Active Substance: SODIUM OXYBATE
     Dosage: 3.5 G, SECOND DOSE
     Route: 048
     Dates: start: 200502, end: 2005
  4. XYREM [Suspect]
     Active Substance: SODIUM OXYBATE
     Dosage: 4.5G, BID
     Route: 048
     Dates: start: 200504
  5. XYREM [Suspect]
     Active Substance: SODIUM OXYBATE
     Dosage: 4 G,FIRST DOSE
     Route: 048
     Dates: start: 200502, end: 2005

REACTIONS (1)
  - Pain [Unknown]
